FAERS Safety Report 11463693 (Version 1)
Quarter: 2015Q3

REPORT INFORMATION
  Report Type: Spontaneous
  Country: US (occurrence: US)
  Receive Date: 20150831
  Receipt Date: 20150831
  Transmission Date: 20151125
  Serious: No
  Sender: FDA-Public Use
  Company Number: US-ELI_LILLY_AND_COMPANY-US201104003886

PATIENT
  Age: 67 Year
  Sex: Male

DRUGS (2)
  1. CYMBALTA [Suspect]
     Active Substance: DULOXETINE HYDROCHLORIDE
     Dosage: 20 MG, QOD
     Dates: start: 20110111
  2. CYMBALTA [Suspect]
     Active Substance: DULOXETINE HYDROCHLORIDE
     Indication: MAJOR DEPRESSION
     Dosage: 40 MG, QOD
     Dates: start: 20110111

REACTIONS (6)
  - Rash [Unknown]
  - Libido decreased [Unknown]
  - Weight increased [Unknown]
  - Sexual dysfunction [Unknown]
  - Vision blurred [Unknown]
  - Fluid retention [Unknown]

NARRATIVE: CASE EVENT DATE: 201101
